FAERS Safety Report 12787019 (Version 1)
Quarter: 2016Q3

REPORT INFORMATION
  Report Type: Spontaneous
  Country: FR (occurrence: FR)
  Receive Date: 20160928
  Receipt Date: 20160928
  Transmission Date: 20161109
  Serious: No
  Sender: FDA-Public Use
  Company Number: FR-TOLMAR, INC.-2014FR010151

PATIENT
  Age: 66 Year
  Sex: Male

DRUGS (4)
  1. FLOXYFRAL [Concomitant]
     Active Substance: FLUVOXAMINE
     Route: 065
  2. ELIGARD [Suspect]
     Active Substance: LEUPROLIDE ACETATE
     Dosage: UNK
     Route: 058
     Dates: start: 20150507
  3. CASODEX [Concomitant]
     Active Substance: BICALUTAMIDE
     Route: 065
  4. ELIGARD [Suspect]
     Active Substance: LEUPROLIDE ACETATE
     Indication: PROSTATE CANCER
     Dosage: UNK
     Route: 058
     Dates: start: 20141008

REACTIONS (8)
  - Transaminases increased [Unknown]
  - Blood cholesterol increased [Unknown]
  - Fatigue [Not Recovered/Not Resolved]
  - Back pain [Recovered/Resolved]
  - Injection site induration [Not Recovered/Not Resolved]
  - Muscle atrophy [Recovering/Resolving]
  - Arthralgia [Not Recovered/Not Resolved]
  - Blood triglycerides increased [Unknown]

NARRATIVE: CASE EVENT DATE: 201411
